FAERS Safety Report 5726101-3 (Version None)
Quarter: 2008Q2

REPORT INFORMATION
  Report Type: 
  Country: None (occurrence: None)
  Receive Date: 20080502
  Receipt Date: 20080423
  Transmission Date: 20081010
  Serious: Yes (Hospitalization)
  Sender: FDA-Public Use
  Company Number: JP-ABBOTT-06P-087-0336344-00

PATIENT
  Sex: Male

DRUGS (6)
  1. KALETRA [Suspect]
     Indication: HIV INFECTION
     Route: 048
     Dates: start: 20050407, end: 20061127
  2. KALETRA [Suspect]
     Indication: HIV INFECTION
     Route: 048
     Dates: start: 20061128
  3. LAMIVUDINE [Suspect]
     Indication: HIV INFECTION
     Route: 048
     Dates: start: 20050407, end: 20060703
  4. STAVUDINE [Suspect]
     Indication: HIV INFECTION
     Route: 048
     Dates: start: 20050407, end: 20060703
  5. EMTRICITABINE W/TENOFOVIR [Concomitant]
     Indication: HIV INFECTION
     Route: 048
     Dates: start: 20060704
  6. CEFAZOLIN SODIUM [Concomitant]
     Indication: INFECTION PROPHYLAXIS
     Route: 042
     Dates: start: 20070706, end: 20070708

REACTIONS (4)
  - ABSCESS [None]
  - APPENDICITIS [None]
  - FACIAL WASTING [None]
  - HYPERLIPIDAEMIA [None]
